FAERS Safety Report 8712955 (Version 4)
Quarter: 2019Q3

REPORT INFORMATION
  Report Type: Spontaneous
  Country: FR (occurrence: FR)
  Receive Date: 20120808
  Receipt Date: 20190909
  Transmission Date: 20191005
  Serious: Yes (Death, Hospitalization, Other)
  Sender: FDA-Public Use
  Company Number: FR-SANOFI-AVENTIS-2012SA054386

PATIENT
  Age: 74 Year
  Sex: Male

DRUGS (15)
  1. AMLODIPINE BESILATE [Suspect]
     Active Substance: AMLODIPINE BESYLATE
     Indication: MYOCARDIAL INFARCTION
     Dosage: UNK UNK,UNK
     Route: 048
     Dates: start: 20120611
  2. LASILIX [FUROSEMIDE] [Concomitant]
     Active Substance: FUROSEMIDE
     Dosage: UNK
  3. BISOPROLOL FUMARATE. [Suspect]
     Active Substance: BISOPROLOL FUMARATE
     Indication: MYOCARDIAL INFARCTION
     Dosage: UNK UNK,UNK
     Route: 048
     Dates: start: 20120611
  4. ATACAND [Concomitant]
     Active Substance: CANDESARTAN CILEXETIL
     Dosage: UNK
  5. TARGOCID [Suspect]
     Active Substance: TEICOPLANIN
     Indication: STAPHYLOCOCCAL BACTERAEMIA
     Dosage: UNK UNK,UNK
     Route: 042
     Dates: start: 20120621, end: 20120705
  6. SECTRAL [Concomitant]
     Active Substance: ACEBUTOLOL HYDROCHLORIDE
     Dosage: UNK
     Route: 065
  7. OFLOCET [Suspect]
     Active Substance: OFLOXACIN
     Indication: STAPHYLOCOCCAL BACTERAEMIA
     Dosage: UNK UNK,UNK
     Route: 048
     Dates: start: 20120621, end: 20120705
  8. PLAVIX [Suspect]
     Active Substance: CLOPIDOGREL BISULFATE
     Indication: MYOCARDIAL INFARCTION
     Dosage: UNK UNK,UNK
     Route: 048
     Dates: start: 20120611
  9. INEGY [Concomitant]
     Active Substance: EZETIMIBE\SIMVASTATIN
     Dosage: UNK
  10. ATORVASTATIN CALCIUM. [Suspect]
     Active Substance: ATORVASTATIN CALCIUM
     Indication: MYOCARDIAL INFARCTION
     Dosage: UNK UNK,UNK
     Route: 048
     Dates: start: 20120611
  11. NOVOMIX [Concomitant]
     Active Substance: INSULIN ASPART
     Dosage: UNK
  12. XATRAL [ALFUZOSIN HYDROCHLORIDE] [Concomitant]
     Active Substance: ALFUZOSIN
     Dosage: UNK
  13. VANCOMYCINE [VANCOMYCIN HYDROCHLORIDE] [Concomitant]
     Active Substance: VANCOMYCIN HYDROCHLORIDE
  14. STEROGYL [ERGOCALCIFEROL] [Concomitant]
     Dosage: UNK
  15. KARDEGIC [Concomitant]
     Active Substance: ASPIRIN DL-LYSINE
     Dosage: UNK

REACTIONS (3)
  - Eosinophilia [Recovered/Resolved]
  - Acute kidney injury [Recovering/Resolving]
  - Pyrexia [Recovered/Resolved]

NARRATIVE: CASE EVENT DATE: 20120629
